FAERS Safety Report 10098792 (Version 3)
Quarter: 2014Q2

REPORT INFORMATION
  Report Type: Spontaneous
  Country: JP (occurrence: JP)
  Receive Date: 20140423
  Receipt Date: 20140603
  Transmission Date: 20141212
  Serious: Yes (Hospitalization)
  Sender: FDA-Public Use
  Company Number: JP-B.I. PHARMACEUTICALS,INC./RIDGEFIELD-2014-BI-01836NB

PATIENT
  Age: 62 Year
  Sex: Female
  Weight: 61 kg

DRUGS (7)
  1. MICARDIS [Suspect]
     Indication: HYPERTENSION
     Dosage: 40 MG
     Route: 048
     Dates: start: 20130110, end: 20130117
  2. OKIRICON [Suspect]
     Indication: LACUNAR INFARCTION
     Dosage: 160 MG
     Route: 042
     Dates: start: 20130110, end: 20130117
  3. NICHOLIN [Suspect]
     Indication: LACUNAR INFARCTION
     Dosage: 500 MG
     Route: 042
     Dates: start: 20130110, end: 20130117
  4. SOLCOSERYL [Suspect]
     Indication: LACUNAR INFARCTION
     Dosage: 4 ML
     Route: 042
     Dates: start: 20130110, end: 20130117
  5. PLETAAL [Suspect]
     Indication: LACUNAR INFARCTION
     Dosage: 100 MG
     Route: 048
     Dates: start: 20130110, end: 20130117
  6. JANUVIA [Suspect]
     Indication: DIABETES MELLITUS
     Dosage: 50 MG
     Route: 048
     Dates: start: 20130111, end: 20130117
  7. CRESTOR [Suspect]
     Indication: DYSLIPIDAEMIA
     Dosage: 2.5 MG
     Route: 048
     Dates: start: 20110111, end: 20130117

REACTIONS (2)
  - Drug-induced liver injury [Recovered/Resolved]
  - Renal failure acute [Recovered/Resolved]
